FAERS Safety Report 4433089-4 (Version None)
Quarter: 2004Q3

REPORT INFORMATION
  Report Type: 
  Country: None (occurrence: None)
  Receive Date: 20040823
  Receipt Date: 20040811
  Transmission Date: 20050211
  Serious: Yes (Other)
  Sender: FDA-Public Use
  Company Number: 2004-08-0629

PATIENT
  Age: 19 Year
  Sex: Male

DRUGS (2)
  1. TEMODAR [Suspect]
     Indication: GLIOBLASTOMA
     Dosage: 75-200MG/M^2 ORAL
     Route: 048
  2. RADIATION THERAPY [Suspect]
     Indication: GLIOBLASTOMA
     Dosage: X-RAY THERAPY

REACTIONS (6)
  - BLOOD PRESSURE INCREASED [None]
  - BRAIN OEDEMA [None]
  - CONFUSIONAL STATE [None]
  - CONVULSION [None]
  - LEUKOENCEPHALOPATHY [None]
  - TREMOR [None]
